FAERS Safety Report 19517425 (Version 4)
Quarter: 2021Q3

REPORT INFORMATION
  Report Type: Report from Study
  Country: None (occurrence: JP)
  Receive Date: 20210712
  Receipt Date: 20210917
  Transmission Date: 20211014
  Serious: Yes (Hospitalization)
  Sender: FDA-Public Use
  Company Number: JP-ABBVIE-21K-087-3984523-00

PATIENT
  Age: 72 Year
  Sex: Male
  Weight: 52 kg

DRUGS (2)
  1. VIDAZA [Suspect]
     Active Substance: AZACITIDINE
     Indication: PRODUCT USED FOR UNKNOWN INDICATION
     Route: 050
     Dates: start: 20210512, end: 20210518
  2. VENCLEXTA [Suspect]
     Active Substance: VENETOCLAX
     Indication: ACUTE MYELOID LEUKAEMIA
     Route: 048
     Dates: start: 20210512, end: 20210608

REACTIONS (2)
  - Myelosuppression [Recovering/Resolving]
  - Viral infection [Recovered/Resolved]

NARRATIVE: CASE EVENT DATE: 20210609
